FAERS Safety Report 11314273 (Version 1)
Quarter: 2015Q3

REPORT INFORMATION
  Report Type: Spontaneous
  Country: US (occurrence: US)
  Receive Date: 20150727
  Receipt Date: 20150727
  Transmission Date: 20151125
  Serious: No
  Sender: FDA-Public Use
  Company Number: US-009507513-1507USA003048

PATIENT
  Sex: Female
  Weight: 61 kg

DRUGS (1)
  1. NEXPLANON [Suspect]
     Active Substance: ETONOGESTREL
     Indication: CONTRACEPTION
     Dosage: 1 ROD 3 YEARS
     Dates: start: 20140320

REACTIONS (3)
  - Menstruation irregular [Unknown]
  - Headache [Unknown]
  - Feeling abnormal [Unknown]
